FAERS Safety Report 8999228 (Version 1)
Quarter: 2013Q1

REPORT INFORMATION
  Report Type: Report from Study
  Country: US (occurrence: US)
  Receive Date: 20130103
  Receipt Date: 20130103
  Transmission Date: 20140127
  Serious: No
  Sender: FDA-Public Use
  Company Number: US-VERTEX PHARMACEUTICALS INC.-2013-000034

PATIENT
  Sex: Female
  Weight: 113 kg

DRUGS (3)
  1. VX-950 (TELAPREVIR) [Suspect]
     Indication: HEPATITIS C
     Dosage: 750 MG, TID
     Route: 048
     Dates: start: 20121207
  2. PEG-INTRON [Suspect]
     Indication: HEPATITIS C
     Dosage: 150 ?G, WEEKLY
     Route: 058
     Dates: start: 20121207
  3. RIBAPAK [Suspect]
     Indication: HEPATITIS C
     Dosage: 600 MG, BID
     Dates: start: 20121207

REACTIONS (3)
  - Insomnia [Unknown]
  - Fatigue [Unknown]
  - Pruritus [Unknown]
